FAERS Safety Report 4730733-9 (Version None)
Quarter: 2005Q3

REPORT INFORMATION
  Report Type: 
  Country: None (occurrence: None)
  Receive Date: 20050725
  Receipt Date: 20050221
  Transmission Date: 20060218
  Serious: No
  Sender: FDA-Public Use
  Company Number: USA050291442

PATIENT
  Age: 52 Year
  Sex: Male
  Weight: 82 kg

DRUGS (6)
  1. STRATTERA [Suspect]
     Indication: ATTENTION DEFICIT/HYPERACTIVITY DISORDER
     Dosage: 40 MG/2 DAY
     Dates: start: 20050201
  2. PRILOSEC(OMEPRAZOLE RATIOPHARM) [Concomitant]
  3. LISINOPRIL [Concomitant]
  4. ZOCOR(SIMVASTATIN RATIOPHARM) [Concomitant]
  5. ACETYLSALICYLIC ACID SRT [Concomitant]
  6. LORATADINE [Concomitant]

REACTIONS (4)
  - CONSTIPATION [None]
  - DRY MOUTH [None]
  - MIDDLE INSOMNIA [None]
  - SOMNOLENCE [None]
